FAERS Safety Report 11012661 (Version 1)
Quarter: 2015Q2

REPORT INFORMATION
  Report Type: Spontaneous
  Country: US (occurrence: None)
  Receive Date: 20150409
  Receipt Date: 20150409
  Transmission Date: 20150821
  Serious: Yes (Hospitalization)
  Sender: FDA-Public Use
  Company Number: 201501159

PATIENT
  Age: 60 Year
  Sex: Male

DRUGS (2)
  1. ANDROGEL [Suspect]
     Active Substance: TESTOSTERONE
     Indication: BLOOD TESTOSTERONE DECREASED
     Dates: start: 201104, end: 201111
  2. TESTIM [Suspect]
     Active Substance: TESTOSTERONE
     Indication: BLOOD TESTOSTERONE DECREASED
     Route: 062
     Dates: start: 200903, end: 200908

REACTIONS (10)
  - Dysarthria [None]
  - Clostridium difficile colitis [None]
  - Pain [None]
  - Pulmonary embolism [None]
  - Economic problem [None]
  - Impaired work ability [None]
  - Fatigue [None]
  - Deep vein thrombosis [None]
  - Anxiety [None]
  - Asthenia [None]

NARRATIVE: CASE EVENT DATE: 20111109
